FAERS Safety Report 8209617-X (Version None)
Quarter: 2012Q1

REPORT INFORMATION
  Report Type: 
  Country: None (occurrence: None)
  Receive Date: 20120314
  Receipt Date: 20120229
  Transmission Date: 20120608
  Serious: Yes (Hospitalization, Other)
  Sender: FDA-Public Use
  Company Number: US-ELI_LILLY_AND_COMPANY-US201105002996

PATIENT
  Sex: Male

DRUGS (20)
  1. ATIVAN [Concomitant]
  2. IMIPRAMINE [Concomitant]
  3. ZYPREXA [Suspect]
     Dosage: 10 MG, QD
  4. ZYPREXA [Suspect]
     Dosage: 25 MG, QD
     Dates: end: 20100304
  5. LORAZEPAM [Concomitant]
  6. CLONAZEPAM [Concomitant]
  7. ZYPREXA [Suspect]
     Dosage: 10 MG, BID
  8. ZYPREXA [Suspect]
     Indication: PSYCHOTIC DISORDER
     Dosage: 15 MG, QD
     Route: 048
     Dates: start: 20030422
  9. ZYPREXA [Suspect]
     Dosage: 5 MG, BID
  10. VALIUM [Concomitant]
  11. LISINOPRIL [Concomitant]
  12. XANAX [Concomitant]
  13. TOPAMAX [Concomitant]
  14. AMLODIPINE [Concomitant]
  15. LAMICTAL [Concomitant]
  16. LOTREL [Concomitant]
  17. TOPROL-XL [Concomitant]
  18. ZYPREXA [Suspect]
     Dosage: 12.5 MG, QD
  19. ZYPREXA [Suspect]
     Dosage: 20 MG, QD
  20. ABILIFY [Concomitant]

REACTIONS (12)
  - RHABDOMYOLYSIS [None]
  - HAEMATOCHEZIA [None]
  - HEMIPARESIS [None]
  - OVERDOSE [None]
  - PARAPLEGIA [None]
  - WEIGHT INCREASED [None]
  - MENTAL STATUS CHANGES [None]
  - MUSCLE RIGIDITY [None]
  - COMPLEX PARTIAL SEIZURES [None]
  - CONVULSION [None]
  - HAEMORRHOIDS [None]
  - TRANSIENT ISCHAEMIC ATTACK [None]
